FAERS Safety Report 23536152 (Version 1)
Quarter: 2024Q1

REPORT INFORMATION
  Report Type: Spontaneous
  Country: FR (occurrence: FR)
  Receive Date: 20240219
  Receipt Date: 20240219
  Transmission Date: 20240409
  Serious: Yes (Hospitalization)
  Sender: FDA-Public Use
  Company Number: None

PATIENT
  Age: 2 Year
  Sex: Male

DRUGS (2)
  1. PREGABALIN [Suspect]
     Active Substance: PREGABALIN
     Indication: Neuralgia
     Dosage: UNKNOWN DOSE
     Route: 048
     Dates: start: 20231023, end: 20231030
  2. DINUTUXIMAB BETA [Suspect]
     Active Substance: DINUTUXIMAB BETA
     Indication: Neuroblastoma
     Route: 042
     Dates: start: 20231023, end: 20231030

REACTIONS (2)
  - Jaundice [Recovered/Resolved]
  - Cholestasis [Recovered/Resolved]

NARRATIVE: CASE EVENT DATE: 20231030
